FAERS Safety Report 25221043 (Version 1)
Quarter: 2025Q2

REPORT INFORMATION
  Report Type: Spontaneous
  Country: FR (occurrence: FR)
  Receive Date: 20250421
  Receipt Date: 20250421
  Transmission Date: 20250716
  Serious: Yes (Death, Other)
  Sender: SANDOZ
  Company Number: FR-SANDOZ-SDZ2025FR024685

PATIENT
  Age: 59 Year
  Sex: Male

DRUGS (7)
  1. CYCLOPHOSPHAMIDE [Suspect]
     Active Substance: CYCLOPHOSPHAMIDE
     Route: 065
     Dates: end: 20180228
  2. CYCLOPHOSPHAMIDE [Suspect]
     Active Substance: CYCLOPHOSPHAMIDE
     Indication: Plasma cell myeloma
     Route: 065
     Dates: end: 20171003
  3. IXAZOMIB [Suspect]
     Active Substance: IXAZOMIB
     Indication: Plasma cell myeloma
     Route: 065
     Dates: end: 20171003
  4. IXAZOMIB [Suspect]
     Active Substance: IXAZOMIB
     Route: 065
     Dates: end: 20180228
  5. PREDNISONE [Suspect]
     Active Substance: PREDNISONE
     Indication: Plasma cell myeloma
     Route: 065
     Dates: end: 20180228
  6. PANOBINOSTAT [Suspect]
     Active Substance: PANOBINOSTAT
     Indication: Plasma cell myeloma
     Route: 065
     Dates: end: 20180228
  7. THALIDOMIDE [Suspect]
     Active Substance: THALIDOMIDE
     Indication: Plasma cell myeloma
     Route: 065
     Dates: end: 20171003

REACTIONS (4)
  - Death [Fatal]
  - Haemorrhage [Unknown]
  - Adverse event [Unknown]
  - Off label use [Unknown]

NARRATIVE: CASE EVENT DATE: 20171003
